FAERS Safety Report 7161449-X (Version None)
Quarter: 2010Q4

REPORT INFORMATION
  Report Type: 
  Country: None (occurrence: None)
  Receive Date: 20101123
  Receipt Date: 20101008
  Transmission Date: 20110411
  Serious: No
  Sender: FDA-Public Use
  Company Number: 020117

PATIENT
  Sex: Male
  Weight: 79.4 kg

DRUGS (4)
  1. CIMZIA [Suspect]
     Indication: RHEUMATOID ARTHRITIS
     Dosage: 200 MG1X/2 WEEKS SUBCUTANEOUS, 200 MG 1X/WEEK SUBCUTANEOUS
     Route: 058
     Dates: start: 20090101, end: 20100901
  2. CIMZIA [Suspect]
     Indication: RHEUMATOID ARTHRITIS
     Dosage: 200 MG1X/2 WEEKS SUBCUTANEOUS, 200 MG 1X/WEEK SUBCUTANEOUS
     Route: 058
     Dates: start: 20100901
  3. ATENOLOL [Concomitant]
  4. LEXAPRO [Concomitant]

REACTIONS (3)
  - BLISTER [None]
  - DYSPNOEA [None]
  - SKIN EXFOLIATION [None]
